FAERS Safety Report 16487064 (Version 1)
Quarter: 2019Q3

REPORT INFORMATION
  Report Type: Spontaneous
  Country: US (occurrence: US)
  Receive Date: 20190626
  Receipt Date: 20190626
  Transmission Date: 20191004
  Serious: Yes (Other)
  Sender: FDA-Public Use
  Company Number: None

PATIENT
  Age: 53 Year
  Sex: Female

DRUGS (9)
  1. ENBREL INJ 50 MG/ML [Concomitant]
  2. HYDROXYCHLOROQUINE TAB 200 MG [Concomitant]
  3. ONE-A-DAY TAB WOMENS [Concomitant]
  4. MULTIPLE VIT TAB [Concomitant]
  5. LEFLUNOMIDE TAB 20 MG [Concomitant]
  6. ORENCIA [Suspect]
     Active Substance: ABATACEPT
     Indication: RHEUMATOID ARTHRITIS
     Dosage: ?          OTHER FREQUENCY:ONCE WEEKLY;?
     Route: 058
     Dates: start: 20160315
  7. LEFLUNOMIDE TAB 10 MG [Concomitant]
     Active Substance: LEFLUNOMIDE
  8. CALCIUM + D TAB 600 MG [Concomitant]
  9. SULFASALAZINE 500 MG [Concomitant]
     Active Substance: SULFASALAZINE

REACTIONS (1)
  - Therapy cessation [None]

NARRATIVE: CASE EVENT DATE: 20190625
